FAERS Safety Report 6683167-4 (Version None)
Quarter: 2010Q2

REPORT INFORMATION
  Report Type: 
  Country: None (occurrence: None)
  Receive Date: 20100415
  Receipt Date: 20100407
  Transmission Date: 20101027
  Serious: Yes (Life-Threatening, Other)
  Sender: FDA-Public Use
  Company Number: JP-PFIZER INC-2010045066

PATIENT
  Age: 58 Year
  Sex: Male

DRUGS (1)
  1. METHYLPREDNISOLONE SODIUM SUCCINATE [Suspect]
     Dosage: 1000 MG DAILY
     Route: 042

REACTIONS (4)
  - BACK PAIN [None]
  - CHEST PAIN [None]
  - DIPLEGIA [None]
  - SENSORY LOSS [None]
